FAERS Safety Report 10313692 (Version 1)
Quarter: 2014Q3

REPORT INFORMATION
  Report Type: Spontaneous
  Country: US (occurrence: US)
  Receive Date: 20140718
  Receipt Date: 20140718
  Transmission Date: 20150326
  Serious: Yes (Disabling, Other)
  Sender: FDA-Public Use
  Company Number: US-PERRIGO-14US006995

PATIENT
  Age: 46 Year
  Sex: Male
  Weight: 67.12 kg

DRUGS (5)
  1. DRUGS FOR OBSTRUCTIVE AIRWAY DISEASES [Concomitant]
     Indication: ASTHMA
     Dosage: UNK
     Route: 055
     Dates: start: 2007
  2. COUGH AND COLD PREPARATIONS [Concomitant]
     Active Substance: UNSPECIFIED INGREDIENT
     Indication: PRODUCT USED FOR UNKNOWN INDICATION
     Route: 065
  3. BENADRYL [Concomitant]
     Active Substance: DIPHENHYDRAMINE HYDROCHLORIDE
     Indication: PRODUCT USED FOR UNKNOWN INDICATION
     Route: 065
  4. NICOTINE POLACRILEX [Suspect]
     Active Substance: NICOTINE
     Dosage: 2 PIECES, EVERY 1/2 HOUR TO AN HOUR
     Route: 002
     Dates: start: 2007, end: 2007
  5. NICOTINE POLACRILEX [Suspect]
     Active Substance: NICOTINE
     Indication: SMOKING CESSATION THERAPY
     Dosage: 4 TO 8 PIECES IN MOUTH, EVERY 2 HOURS
     Route: 002
     Dates: start: 2007, end: 20140612

REACTIONS (8)
  - Head injury [Unknown]
  - Hiccups [Unknown]
  - Abnormal behaviour [Unknown]
  - Overdose [Unknown]
  - Nicotine dependence [Unknown]
  - Amnesia [Not Recovered/Not Resolved]
  - Wrong technique in drug usage process [Unknown]
  - Loss of consciousness [Recovered/Resolved]

NARRATIVE: CASE EVENT DATE: 2007
